FAERS Safety Report 6698671-2 (Version None)
Quarter: 2010Q2

REPORT INFORMATION
  Report Type: 
  Country: None (occurrence: None)
  Receive Date: 20100426
  Receipt Date: 20100426
  Transmission Date: 20101027
  Serious: No
  Sender: FDA-Public Use
  Company Number: None

PATIENT
  Age: 38 Year
  Sex: Female
  Weight: 67.586 kg

DRUGS (1)
  1. ALLI [Suspect]
     Indication: WEIGHT DECREASED
     Dosage: 1 PILL 3X A DAY PO
     Route: 048
     Dates: start: 20070630, end: 20091010

REACTIONS (2)
  - ADENOMA BENIGN [None]
  - COLONIC POLYP [None]
